FAERS Safety Report 8337505-7 (Version None)
Quarter: 2012Q2

REPORT INFORMATION
  Report Type: 
  Country: None (occurrence: None)
  Receive Date: 20120504
  Receipt Date: 20110808
  Transmission Date: 20120825
  Serious: No
  Sender: FDA-Public Use
  Company Number: US-TEVA-2011004177

PATIENT
  Sex: Female
  Weight: 63.56 kg

DRUGS (13)
  1. VITAMIN AND MINERAL PRENATAL SUPPLEMENT W/ FOLIC ACID CAP [Concomitant]
     Dates: start: 20090101
  2. KLONOPIN [Concomitant]
     Dates: start: 20100101
  3. NUVIGIL [Suspect]
     Indication: SLEEP APNOEA SYNDROME
     Dosage: 150 MILLIGRAM;
     Route: 048
     Dates: start: 20110701
  4. PLENDIL [Concomitant]
     Dates: start: 20090101
  5. AMITRIPTYLINE HCL [Concomitant]
     Dates: start: 20090101
  6. ARICEPT [Concomitant]
     Dates: start: 20100101
  7. VITAMIN B-12 [Concomitant]
     Dates: start: 20090101
  8. LIPITOR [Concomitant]
     Dates: start: 20090101
  9. AMARYL [Concomitant]
  10. METFORMIN HCL [Concomitant]
     Dates: start: 20100101
  11. EFFEXOR [Concomitant]
     Dates: start: 20090101
  12. PLAVIX [Concomitant]
     Dates: start: 20100101
  13. NAMENDA [Concomitant]
     Dates: start: 20100101

REACTIONS (4)
  - DIZZINESS [None]
  - CHEST PAIN [None]
  - HEADACHE [None]
  - INSOMNIA [None]
